FAERS Safety Report 4353273-8 (Version None)
Quarter: 2004Q2

REPORT INFORMATION
  Report Type: 
  Country: None (occurrence: None)
  Receive Date: 20040503
  Receipt Date: 20040503
  Transmission Date: 20050107
  Serious: Yes (Life-Threatening, Hospitalization)
  Sender: FDA-Public Use
  Company Number: None

PATIENT
  Age: 59 Year
  Sex: Male
  Weight: 80.7 kg

DRUGS (1)
  1. ONTAK [Suspect]

REACTIONS (1)
  - CAPILLARY LEAK SYNDROME [None]
